FAERS Safety Report 21329261 (Version 1)
Quarter: 2022Q3

REPORT INFORMATION
  Report Type: Spontaneous
  Country: DK (occurrence: DK)
  Receive Date: 20220913
  Receipt Date: 20220913
  Transmission Date: 20221026
  Serious: Yes (Other)
  Sender: FDA-Public Use
  Company Number: DK-FreseniusKabi-FK202212447

PATIENT
  Age: 78 Year
  Sex: Female

DRUGS (2)
  1. ZOLEDRONIC ACID [Suspect]
     Active Substance: ZOLEDRONIC ACID
     Indication: Non-small cell lung cancer metastatic
     Route: 042
  2. ERLOTINIB [Concomitant]
     Active Substance: ERLOTINIB
     Indication: Non-small cell lung cancer metastatic

REACTIONS (2)
  - Optic neuritis [Recovered/Resolved]
  - Influenza [Unknown]
